FAERS Safety Report 11739516 (Version 1)
Quarter: 2015Q4

REPORT INFORMATION
  Report Type: Spontaneous
  Country: TR (occurrence: TR)
  Receive Date: 20151113
  Receipt Date: 20151113
  Transmission Date: 20160304
  Serious: Yes (Death, Other)
  Sender: FDA-Public Use
  Company Number: ALCN2015TR007026

PATIENT
  Sex: Male
  Weight: .72 kg

DRUGS (4)
  1. MYDRIACYL [Suspect]
     Active Substance: TROPICAMIDE
     Indication: POSTOPERATIVE CARE
     Dosage: 1 GTT, TID
     Route: 047
  2. TROPAMID [Suspect]
     Active Substance: TROPICAMIDE
     Indication: OPHTHALMOLOGICAL EXAMINATION
     Dosage: UNK
     Route: 047
  3. MYDFRIN [Suspect]
     Active Substance: PHENYLEPHRINE HYDROCHLORIDE
     Indication: OPHTHALMOLOGICAL EXAMINATION
     Dosage: UNK
     Route: 047
  4. DEXAMETHASONE. [Suspect]
     Active Substance: DEXAMETHASONE
     Indication: POSTOPERATIVE CARE
     Dosage: 1 GTT, 5QD
     Route: 047

REACTIONS (8)
  - Anterior segment ischaemia [Unknown]
  - Corneal oedema [Unknown]
  - Intraocular pressure decreased [Unknown]
  - Corneal disorder [Unknown]
  - Hyphaema [Unknown]
  - Haemodynamic instability [Fatal]
  - Circulatory collapse [Fatal]
  - Keratoconus [Unknown]
